FAERS Safety Report 4409592-X (Version None)
Quarter: 2004Q3

REPORT INFORMATION
  Report Type: 
  Country: None (occurrence: None)
  Receive Date: 20040723
  Receipt Date: 20031103
  Transmission Date: 20050211
  Serious: Yes (Other)
  Sender: FDA-Public Use
  Company Number: US-JNJFOC-20040603933

PATIENT
  Age: 73 Year
  Sex: Female

DRUGS (5)
  1. ACETAMINOPHEN [Suspect]
     Indication: ARTHRALGIA
     Dosage: 650 MG, 1 IN 1 TOTAL, ORAL
     Route: 048
     Dates: start: 20031030, end: 20031030
  2. PLENDIL [Concomitant]
  3. PROPRANOLOL [Concomitant]
  4. ALPRAZOLAM [Concomitant]
  5. UNSPECIFIED (ALL OTHER THERAPEUTIC PRODUCTS) [Concomitant]

REACTIONS (4)
  - CHOKING SENSATION [None]
  - DYSPHAGIA [None]
  - FOREIGN BODY TRAUMA [None]
  - UNEVALUABLE EVENT [None]
